FAERS Safety Report 10952238 (Version 1)
Quarter: 2015Q1

REPORT INFORMATION
  Report Type: Spontaneous
  Country: US (occurrence: None)
  Receive Date: 20150323
  Receipt Date: 20150323
  Transmission Date: 20150721
  Serious: No
  Sender: FDA-Public Use
  Company Number: VIT-2015-00283

PATIENT
  Age: 61 Year
  Sex: Male
  Weight: 106 kg

DRUGS (8)
  1. SOLICACID [Concomitant]
  2. VELPHORO [Suspect]
     Active Substance: FERRIC OXYHYDROXIDE
     Indication: HYPOPHOSPHATAEMIA
     Route: 048
     Dates: start: 2014, end: 2014
  3. SAXAGLIPTIN [Concomitant]
     Active Substance: SAXAGLIPTIN
  4. ATENOLOL. [Concomitant]
     Active Substance: ATENOLOL
  5. FENOFIBRATE. [Concomitant]
     Active Substance: FENOFIBRATE
  6. LEVOTHYROXINE [Concomitant]
     Active Substance: LEVOTHYROXINE
  7. NIFEDIPINE. [Concomitant]
     Active Substance: NIFEDIPINE
  8. LOVASTATIN. [Concomitant]
     Active Substance: LOVASTATIN

REACTIONS (1)
  - Product taste abnormal [None]

NARRATIVE: CASE EVENT DATE: 2014
